FAERS Safety Report 4806238-3 (Version None)
Quarter: 2005Q4

REPORT INFORMATION
  Report Type: 
  Country: None (occurrence: None)
  Receive Date: 20051021
  Receipt Date: 20051010
  Transmission Date: 20060501
  Serious: Yes (Hospitalization, Other)
  Sender: FDA-Public Use
  Company Number: FR-BRISTOL-MYERS SQUIBB COMPANY-13143953

PATIENT
  Age: 85 Year
  Sex: Female

DRUGS (9)
  1. GLUCOPHAGE [Suspect]
     Indication: DIABETES MELLITUS NON-INSULIN-DEPENDENT
     Route: 048
     Dates: end: 20050605
  2. PREVISCAN [Concomitant]
     Dosage: DOSAGE FORM = 1/2, 1/4 IN ALTERANCE (1 DAY)
     Route: 048
  3. NEURONTIN [Concomitant]
     Route: 048
  4. ZOLOFT [Concomitant]
     Route: 048
     Dates: end: 20050605
  5. XANAX [Concomitant]
     Route: 048
  6. NEXIUM [Concomitant]
     Route: 048
  7. MIXTARD HUMAN 70/30 [Concomitant]
     Dosage: DOSAGE FORM = IU
  8. DIGOXIN [Concomitant]
     Dates: start: 20050604
  9. DOLIPRANE [Concomitant]
     Route: 048
     Dates: end: 20050605

REACTIONS (11)
  - AGITATION [None]
  - ANOREXIA [None]
  - APATHY [None]
  - ATRIAL FIBRILLATION [None]
  - HYPERKALAEMIA [None]
  - INTERSTITIAL LUNG DISEASE [None]
  - LACTIC ACIDOSIS [None]
  - METABOLIC ACIDOSIS [None]
  - RENAL FAILURE [None]
  - TACHYARRHYTHMIA [None]
  - TACHYPNOEA [None]
